FAERS Safety Report 19721940 (Version 1)
Quarter: 2021Q3

REPORT INFORMATION
  Report Type: Spontaneous
  Country: IR (occurrence: IR)
  Receive Date: 20210818
  Receipt Date: 20210818
  Transmission Date: 20211014
  Serious: Yes (Death)
  Sender: FDA-Public Use
  Company Number: IR-BAXTER-2021BAX025183

PATIENT
  Age: 15 Year
  Sex: Male

DRUGS (7)
  1. AERRANE [Suspect]
     Active Substance: ISOFLURANE
     Indication: RHINOPLASTY
     Route: 055
     Dates: start: 20210806, end: 20210806
  2. MORPHIN [Suspect]
     Active Substance: MORPHINE
     Indication: RHINOPLASTY
     Route: 065
     Dates: start: 20210806, end: 20210806
  3. MIDAZOLAM. [Suspect]
     Active Substance: MIDAZOLAM
     Indication: RHINOPLASTY
     Route: 065
     Dates: start: 20210806, end: 20210806
  4. LIDOCAINE. [Suspect]
     Active Substance: LIDOCAINE
     Indication: RHINOPLASTY
     Route: 065
     Dates: start: 20210806, end: 20210806
  5. ATRACURIUM [Suspect]
     Active Substance: ATRACURIUM
     Indication: RHINOPLASTY
     Route: 065
     Dates: start: 20210806, end: 20210806
  6. LABETALOL [Suspect]
     Active Substance: LABETALOL\LABETALOL HYDROCHLORIDE
     Indication: RHINOPLASTY
     Route: 065
     Dates: start: 20210806, end: 20210806
  7. FENTANYL. [Suspect]
     Active Substance: FENTANYL
     Indication: RHINOPLASTY
     Route: 065
     Dates: start: 20210806, end: 20210806

REACTIONS (4)
  - Respiratory acidosis [Fatal]
  - Hyperthermia [Fatal]
  - Metabolic acidosis [Fatal]
  - Tachycardia [Fatal]

NARRATIVE: CASE EVENT DATE: 20210806
